FAERS Safety Report 16225137 (Version 1)
Quarter: 2019Q2

REPORT INFORMATION
  Report Type: Report from Study
  Country: FR (occurrence: FR)
  Receive Date: 20190422
  Receipt Date: 20190422
  Transmission Date: 20190711
  Serious: Yes (Other)
  Sender: FDA-Public Use
  Company Number: FR-MYLANLABS-2019M1037464

PATIENT
  Age: 62 Year

DRUGS (2)
  1. ALENDRONATE [Suspect]
     Active Substance: ALENDRONATE SODIUM
     Indication: OSTEOPOROSIS
     Route: 065
  2. DENOSUMAB [Suspect]
     Active Substance: DENOSUMAB
     Indication: OSTEOPOROSIS
     Route: 065

REACTIONS (3)
  - Lumbar vertebral fracture [Unknown]
  - Thoracic vertebral fracture [Unknown]
  - Rebound effect [Unknown]
